FAERS Safety Report 11801608 (Version 1)
Quarter: 2015Q4

REPORT INFORMATION
  Report Type: Spontaneous
  Country: US (occurrence: None)
  Receive Date: 20151203
  Receipt Date: 20151203
  Transmission Date: 20160305
  Serious: Yes (Other)
  Sender: FDA-Public Use
  Company Number: None

PATIENT

DRUGS (1)
  1. CREST 3D WHITE WHITESTRIPS DENTAL WHITENING KIT, VERSION UNKNOWN THE PROCTER + GAMBLE COMPANY [Suspect]
     Active Substance: HYDROGEN PEROXIDE
     Dosage: INTRAORAL

REACTIONS (1)
  - Tooth loss [None]
